FAERS Safety Report 8219384-1 (Version None)
Quarter: 2012Q1

REPORT INFORMATION
  Report Type: 
  Country: None (occurrence: None)
  Receive Date: 20120307
  Receipt Date: 20100201
  Transmission Date: 20120608
  Serious: Yes (Other)
  Sender: FDA-Public Use
  Company Number: PHHY2010US05694

PATIENT

DRUGS (2)
  1. COUMADIN [Concomitant]
  2. AFINITOR [Suspect]
     Indication: RENAL CELL CARCINOMA
     Dosage: 10 MG, QD, ORAL ; 5 MG, QD, ORAL
     Route: 048

REACTIONS (3)
  - THROMBOCYTOPENIA [None]
  - DEHYDRATION [None]
  - NEUTROPENIA [None]
